FAERS Safety Report 24375184 (Version 7)
Quarter: 2025Q4

REPORT INFORMATION
  Report Type: Spontaneous
  Country: JP (occurrence: JP)
  Receive Date: 20240928
  Receipt Date: 20251105
  Transmission Date: 20260118
  Serious: Yes (Hospitalization)
  Sender: AMGEN
  Company Number: JP-AMGEN-JPNSP2024192545

PATIENT
  Age: 39 Year
  Sex: Female

DRUGS (7)
  1. UPLIZNA [Suspect]
     Active Substance: INEBILIZUMAB-CDON
     Indication: Neuromyelitis optica spectrum disorder
     Dosage: 300 MILLIGRAM, QD
     Route: 042
     Dates: start: 20240805
  2. UPLIZNA [Suspect]
     Active Substance: INEBILIZUMAB-CDON
     Dosage: 300 MILLIGRAM, QD
     Route: 042
     Dates: start: 20240819
  3. UPLIZNA [Suspect]
     Active Substance: INEBILIZUMAB-CDON
     Dosage: 300 MILLIGRAM, QD
     Route: 042
     Dates: start: 20250401, end: 20250401
  4. SULFAMETHOXAZOLE\TRIMETHOPRIM [Suspect]
     Active Substance: SULFAMETHOXAZOLE\TRIMETHOPRIM
     Indication: Antifungal prophylaxis
     Dosage: UNK
     Route: 065
  5. ACTONEL [Suspect]
     Active Substance: RISEDRONATE SODIUM
     Indication: Osteoporosis
     Dosage: UNK
     Route: 065
  6. PREDONINE [Suspect]
     Active Substance: PREDNISOLONE
     Indication: Neuromyelitis optica spectrum disorder
     Dosage: UNK
     Route: 048
  7. PREDONINE [Suspect]
     Active Substance: PREDNISOLONE
     Dosage: 7 MILLIGRAM, QD
     Route: 048

REACTIONS (3)
  - Urinary tract infection [Recovered/Resolved]
  - Hepatic function abnormal [Recovering/Resolving]
  - Pneumonia [Recovered/Resolved]

NARRATIVE: CASE EVENT DATE: 20240905
